FAERS Safety Report 21813162 (Version 1)
Quarter: 2023Q1

REPORT INFORMATION
  Report Type: Spontaneous
  Country: None (occurrence: FR)
  Receive Date: 20230103
  Receipt Date: 20230103
  Transmission Date: 20230418
  Serious: Yes (Hospitalization)
  Sender: FDA-Public Use
  Company Number: FR-B.Braun Medical Inc.-2136373

PATIENT
  Age: 77 Year
  Sex: Male

DRUGS (10)
  1. CEFAZOLIN [Suspect]
     Active Substance: CEFAZOLIN
  2. PROPOFOL [Suspect]
     Active Substance: PROPOFOL
  3. MEPIVACAINE [Suspect]
     Active Substance: MEPIVACAINE HYDROCHLORIDE
  4. KETAMINE HYDROCHLORIDE [Suspect]
     Active Substance: KETAMINE HYDROCHLORIDE
  5. HERBALS\SAW PALMETTO [Concomitant]
     Active Substance: HERBALS\SAW PALMETTO
  6. INDAPAMIDE\PERINDOPRIL [Concomitant]
     Active Substance: INDAPAMIDE\PERINDOPRIL
  7. SILODOSIN [Concomitant]
     Active Substance: SILODOSIN
  8. EZETIMIBE [Concomitant]
     Active Substance: EZETIMIBE
  9. ^Atorvastatine^ [Concomitant]
  10. BISOPROLOL. [Concomitant]
     Active Substance: BISOPROLOL FUMARATE

REACTIONS (3)
  - Hypertonia [Recovered/Resolved]
  - Psychomotor hyperactivity [Recovered/Resolved]
  - Dysarthria [Recovered/Resolved]
